FAERS Safety Report 6210784-8 (Version None)
Quarter: 2009Q2

REPORT INFORMATION
  Report Type: 
  Country: None (occurrence: None)
  Receive Date: 20090601
  Receipt Date: 20090420
  Transmission Date: 20091009
  Serious: Yes (Hospitalization)
  Sender: FDA-Public Use
  Company Number: JP-ASTRAZENECA-2009SE01995

PATIENT
  Age: 25137 Day
  Sex: Female

DRUGS (4)
  1. BLOPRESS [Suspect]
     Indication: HYPERTENSION
     Route: 048
     Dates: start: 20090406, end: 20090410
  2. ACTOS [Suspect]
     Indication: DIABETES MELLITUS
     Route: 048
     Dates: start: 20080221, end: 20090325
  3. NORVASC [Suspect]
     Indication: HYPERTENSION
     Route: 048
     Dates: start: 19981130, end: 20090325
  4. ALLELOCK [Suspect]
     Indication: SEASONAL ALLERGY
     Route: 048
     Dates: start: 20090319, end: 20090321

REACTIONS (1)
  - PHOTOSENSITIVITY REACTION [None]
